FAERS Safety Report 9565573 (Version 1)
Quarter: 2013Q3

REPORT INFORMATION
  Report Type: Spontaneous
  Country: US (occurrence: US)
  Receive Date: 20130930
  Receipt Date: 20130930
  Transmission Date: 20140515
  Serious: Yes (Other)
  Sender: FDA-Public Use
  Company Number: US-JNJFOC-20130914055

PATIENT
  Sex: Female
  Weight: 80.29 kg

DRUGS (8)
  1. REMICADE [Suspect]
     Indication: CROHN^S DISEASE
     Route: 042
  2. REMICADE [Suspect]
     Indication: COLITIS ULCERATIVE
     Route: 042
  3. ELMIRON [Suspect]
     Indication: CROHN^S DISEASE
     Route: 065
  4. ELMIRON [Suspect]
     Indication: CROHN^S DISEASE
     Route: 065
  5. ELMIRON [Suspect]
     Indication: COLITIS ULCERATIVE
     Route: 065
  6. ELMIRON [Suspect]
     Indication: COLITIS ULCERATIVE
     Route: 065
  7. PENTASA [Concomitant]
     Indication: CROHN^S DISEASE
     Route: 048
  8. LOMOTIL [Concomitant]
     Indication: CROHN^S DISEASE
     Dosage: AS NEEDED
     Route: 048

REACTIONS (1)
  - Skin cancer [Not Recovered/Not Resolved]
